FAERS Safety Report 9679569 (Version 3)
Quarter: 2017Q2

REPORT INFORMATION
  Report Type: Spontaneous
  Country: US (occurrence: US)
  Receive Date: 20131109
  Receipt Date: 20170413
  Transmission Date: 20170830
  Serious: No
  Sender: FDA-Public Use
  Company Number: US-SA-2013SA096245

PATIENT
  Age: 71 Year
  Sex: Female

DRUGS (1)
  1. ALLEGRA-D 24 HOUR [Suspect]
     Active Substance: FEXOFENADINE HYDROCHLORIDE\PSEUDOEPHEDRINE HYDROCHLORIDE
     Indication: MULTIPLE ALLERGIES
     Dosage: DOSE - 60/120
     Route: 048

REACTIONS (3)
  - Head discomfort [Unknown]
  - Drug ineffective [Unknown]
  - Therapeutic response decreased [Unknown]
